FAERS Safety Report 23833651 (Version 1)
Quarter: 2024Q2

REPORT INFORMATION
  Report Type: Spontaneous
  Country: US (occurrence: US)
  Receive Date: 20240508
  Receipt Date: 20240508
  Transmission Date: 20240716
  Serious: Yes (Hospitalization, Other)
  Sender: FDA-Public Use
  Company Number: US-BRISTOL-MYERS SQUIBB COMPANY-2024-069908

PATIENT
  Age: 83 Year
  Sex: Female
  Weight: 61.69 kg

DRUGS (12)
  1. POMALYST [Suspect]
     Active Substance: POMALIDOMIDE
     Indication: Plasma cell myeloma
     Dosage: 14 D ON, 14 D OFF
     Route: 048
  2. ASPIRIN [Concomitant]
     Active Substance: ASPIRIN
  3. DULOXETINE [Concomitant]
     Active Substance: DULOXETINE
  4. LEVOTHYROXINE [Concomitant]
     Active Substance: LEVOTHYROXINE\LEVOTHYROXINE SODIUM
  5. LORAZEPAM [Concomitant]
     Active Substance: LORAZEPAM
  6. OMEPRAZOLE [Concomitant]
     Active Substance: DONEPEZIL HYDROCHLORIDE\OMEPRAZOLE\OMEPRAZOLE MAGNESIUM
  7. SIMVASTATIN [Concomitant]
     Active Substance: SIMVASTATIN
  8. TRAZODONE [Concomitant]
     Active Substance: TRAZODONE HYDROCHLORIDE
  9. TRIAMTERENE [Concomitant]
     Active Substance: TRIAMTERENE
  10. SINGULAIR [Concomitant]
     Active Substance: MONTELUKAST SODIUM
  11. ONDANSETRON [Concomitant]
     Active Substance: ONDANSETRON
  12. ACYCLOVIR [Concomitant]
     Active Substance: ACYCLOVIR

REACTIONS (4)
  - Influenza [Recovered/Resolved]
  - Sepsis syndrome [Recovered/Resolved]
  - Pancytopenia [Recovered/Resolved]
  - Off label use [Unknown]
